FAERS Safety Report 8200191-0 (Version None)
Quarter: 2012Q1

REPORT INFORMATION
  Report Type: 
  Country: None (occurrence: None)
  Receive Date: 20120306
  Receipt Date: 20120222
  Transmission Date: 20120608
  Serious: Yes (Other)
  Sender: FDA-Public Use
  Company Number: 1211045

PATIENT
  Age: 50 Year
  Sex: Female
  Weight: 85 kg

DRUGS (9)
  1. DOCETAXEL [Suspect]
     Indication: BREAST CANCER
     Dosage: 160 MG FURTHER ADJUSTED TO 190 MG IN 250 ML NACL 0.9% INTRAVENOUS DRIP
     Route: 041
     Dates: start: 20120207
  2. CYCLOPHOSPHAMIDE [Concomitant]
  3. (TRASTUZUMAB) [Concomitant]
  4. DEXAMETHASONE [Concomitant]
  5. METOCLOPRAMIDE [Concomitant]
  6. PREDNISOLONE [Concomitant]
  7. GRANISETRON [Concomitant]
  8. DOCETAXEL [Suspect]
     Indication: BREAST CANCER
     Dosage: 160 MG FURTHER ADJUSTED TO 190 MG IN 250 ML NACL 0.9% INTRAVENOUS DRIP
     Route: 041
     Dates: start: 20120207
  9. DOXORUBICIN HCL [Concomitant]

REACTIONS (5)
  - ERYTHEMA [None]
  - OEDEMA PERIPHERAL [None]
  - FEELING COLD [None]
  - PHARYNGEAL OEDEMA [None]
  - PAIN [None]
